FAERS Safety Report 19134422 (Version 1)
Quarter: 2021Q2

REPORT INFORMATION
  Report Type: Spontaneous
  Country: FR (occurrence: FR)
  Receive Date: 20210414
  Receipt Date: 20210414
  Transmission Date: 20210717
  Serious: Yes (Other)
  Sender: FDA-Public Use
  Company Number: FR-SA-2021SA120348

PATIENT
  Age: 72 Year
  Sex: Male
  Weight: 87 kg

DRUGS (3)
  1. EFFORTIL 5 MG, COMPRIME [Suspect]
     Active Substance: ETILEFRINE HYDROCHLORIDE
     Indication: PLASMA CELL MYELOMA
     Dosage: DAYS OF SARCLISA ADMINISTRATION
     Route: 048
     Dates: start: 20200311
  2. SARCLISA [Suspect]
     Active Substance: ISATUXIMAB-IRFC
     Indication: PLASMA CELL MYELOMA
     Dosage: 10 MG/KG, Q15D
     Route: 041
     Dates: start: 20200311
  3. IMNOVID [Suspect]
     Active Substance: POMALIDOMIDE
     Indication: PLASMA CELL MYELOMA
     Dosage: FOR 21 DAYS
     Route: 048
     Dates: start: 20200311

REACTIONS (3)
  - Hypogammaglobulinaemia [Not Recovered/Not Resolved]
  - N-terminal prohormone brain natriuretic peptide increased [Not Recovered/Not Resolved]
  - Oedema peripheral [Recovered/Resolved]

NARRATIVE: CASE EVENT DATE: 202006
